FAERS Safety Report 25754509 (Version 1)
Quarter: 2025Q3

REPORT INFORMATION
  Report Type: Spontaneous
  Country: JP (occurrence: JP)
  Receive Date: 20250903
  Receipt Date: 20250903
  Transmission Date: 20251020
  Serious: Yes (Other)
  Sender: CSL BEHRING
  Company Number: JP-BEH-2025217159

PATIENT
  Age: 5 Decade
  Sex: Female

DRUGS (2)
  1. ANDEMBRY [Suspect]
     Active Substance: GARADACIMAB-GXII
     Indication: Prophylaxis
     Route: 058
     Dates: start: 20250728, end: 20250728
  2. ANDEMBRY [Suspect]
     Active Substance: GARADACIMAB-GXII
     Indication: Hereditary angioedema

REACTIONS (1)
  - Hereditary angioedema [Recovered/Resolved]
